FAERS Safety Report 7933879-7 (Version None)
Quarter: 2011Q4

REPORT INFORMATION
  Report Type: 
  Country: None (occurrence: None)
  Receive Date: 20111122
  Receipt Date: 20111112
  Transmission Date: 20120403
  Serious: Yes (Hospitalization, Other)
  Sender: FDA-Public Use
  Company Number: US-BAYER-2011-082362

PATIENT
  Age: 34 Year
  Sex: Female
  Weight: 104.31 kg

DRUGS (11)
  1. YASMIN [Suspect]
     Indication: CONTRACEPTION
     Dosage: UNK
     Route: 048
     Dates: start: 20021124, end: 20031016
  2. GUAIFENESIN [Concomitant]
     Dosage: UNK
     Route: 048
     Dates: start: 20030915
  3. IBUPROFEN [Concomitant]
     Route: 048
  4. FLEXERIL [Concomitant]
     Indication: MYALGIA
     Dosage: 5 MG, UNK
     Route: 048
  5. ALBUTEROL [Concomitant]
     Route: 045
  6. LEVAQUIN [Concomitant]
     Dosage: UNK
     Dates: start: 20030915
  7. DIFLUCAN [Concomitant]
     Dosage: 150 MG, UNK
     Route: 048
     Dates: start: 20030715
  8. ORAL CONTRACEPTIVE NOS [Concomitant]
  9. BIAXIN [Concomitant]
  10. ADVAIR DISKUS 100/50 [Concomitant]
     Route: 045
  11. LEVAQUIN [Concomitant]
     Dosage: 500 MG, UNK
     Route: 048
     Dates: start: 20030706

REACTIONS (8)
  - DEEP VEIN THROMBOSIS [None]
  - OEDEMA PERIPHERAL [None]
  - PULMONARY EMBOLISM [None]
  - BRONCHITIS CHRONIC [None]
  - DEPRESSION [None]
  - ANXIETY [None]
  - INJURY [None]
  - PAIN [None]
